FAERS Safety Report 6301439-X (Version None)
Quarter: 2009Q3

REPORT INFORMATION
  Report Type: 
  Country: None (occurrence: None)
  Receive Date: 20090807
  Receipt Date: 20090728
  Transmission Date: 20100115
  Serious: Yes (Hospitalization)
  Sender: FDA-Public Use
  Company Number: US-TYCO HEALTHCARE/MALLINCKRODT-T200901431

PATIENT
  Age: 11 Year
  Sex: Female

DRUGS (2)
  1. SODIUM IODIDE I 131 [Suspect]
     Indication: RADIOACTIVE IODINE THERAPY
     Dosage: 10 MCI, SINGLE
  2. BETA BLOCKING AGENTS [Suspect]
     Indication: BASEDOW'S DISEASE
     Dosage: BETA BLOCKADE FOR ONE WEEK

REACTIONS (2)
  - CONVULSION [None]
  - THYROTOXIC CRISIS [None]
